FAERS Safety Report 7822261-9 (Version None)
Quarter: 2011Q4

REPORT INFORMATION
  Report Type: 
  Country: None (occurrence: None)
  Receive Date: 20111018
  Receipt Date: 20110413
  Transmission Date: 20120403
  Serious: No
  Sender: FDA-Public Use
  Company Number: US-ASTRAZENECA-2011SE21519

PATIENT
  Sex: Male

DRUGS (2)
  1. SYMBICORT [Suspect]
     Indication: DYSPNOEA
     Dosage: 160 UG DAILY
     Route: 055
  2. WARFARIN SODIUM [Concomitant]

REACTIONS (1)
  - PROTHROMBIN TIME ABNORMAL [None]
